FAERS Safety Report 26050044 (Version 1)
Quarter: 2025Q4

REPORT INFORMATION
  Report Type: Other
  Country: GB (occurrence: GB)
  Receive Date: 20251116
  Receipt Date: 20251116
  Transmission Date: 20260117
  Serious: Yes (Other)
  Sender: GLENMARK
  Company Number: GB-MHRA-TPP3686345C27777531YC1762161515823

PATIENT
  Age: 54 Year
  Sex: Female
  Weight: 88 kg

DRUGS (23)
  1. ROSUVASTATIN CALCIUM [Suspect]
     Active Substance: ROSUVASTATIN CALCIUM
     Indication: Blood cholesterol increased
     Dosage: 5 MILLIGRAM, QD
     Route: 065
     Dates: start: 20250925, end: 20251103
  2. FERROUS FUMARATE [Concomitant]
     Active Substance: FERROUS FUMARATE
     Indication: Anaemia
     Dosage: 1 DOSAGE FORM, QD (TAKE ONE TABLET ONCE A DAY ON AN EMPTY STOMACH TO TREAT ANAEMIA.  CONTINUE UNTIL
     Route: 065
     Dates: start: 20251008
  3. ATORVASTATIN [Concomitant]
     Active Substance: ATORVASTATIN
     Indication: Ill-defined disorder
     Dosage: QD (TAKE ONE DAILY)
     Route: 065
     Dates: start: 20230615, end: 20251103
  4. CYCLIZINE [Concomitant]
     Active Substance: CYCLIZINE
     Indication: Ill-defined disorder
     Dosage: 1 DOSAGE FORM, TID (TAKE ONE TABLET UP TO THREE TIMES A DAY TO HELP...)
     Route: 065
     Dates: start: 20230615, end: 20250910
  5. EDOXABAN [Concomitant]
     Active Substance: EDOXABAN
     Indication: Ill-defined disorder
     Dosage: 1 DOSAGE FORM, QD (TAKE ONE TABLET ONCE A DAY TO HELP PREVENT BLOO...)
     Route: 065
     Dates: start: 20230615
  6. MINERAL OIL\PARAFFIN [Concomitant]
     Active Substance: MINERAL OIL\PARAFFIN
     Indication: Ill-defined disorder
     Dosage: (MILD DRY SKIN) APPLY AS DIRECTED AS A SKIN MOI...
     Route: 065
     Dates: start: 20230615, end: 20250910
  7. METFORMIN [Concomitant]
     Active Substance: METFORMIN HYDROCHLORIDE
     Indication: Ill-defined disorder
     Dosage: 2 WITH BREAKFAST AND 2 WITH DINNER
     Route: 065
     Dates: start: 20230615
  8. OMEPRAZOLE [Concomitant]
     Active Substance: OMEPRAZOLE
     Indication: Ill-defined disorder
     Dosage: UNK UNK, BID (TAKE ONE TWICE DAILY)
     Route: 065
     Dates: start: 20230615
  9. ACETAMINOPHEN [Concomitant]
     Active Substance: ACETAMINOPHEN
     Indication: Ill-defined disorder
     Dosage: 2 DOSAGE FORM, QID (2 TABLETS FOUR TIMES DAILY
     Route: 065
     Dates: start: 20230615
  10. VENLAFAXINE [Concomitant]
     Active Substance: VENLAFAXINE HYDROCHLORIDE
     Indication: Ill-defined disorder
     Dosage: TAKE TWO EACH MORNING AND ONE AT NIGHT
     Route: 065
     Dates: start: 20230615
  11. ARIPIPRAZOLE [Concomitant]
     Active Substance: ARIPIPRAZOLE
     Indication: Ill-defined disorder
     Dosage: QD (TAKE ONE EVERY DAY)
     Route: 065
     Dates: start: 20240216
  12. ALENDRONIC ACID [Concomitant]
     Active Substance: ALENDRONIC ACID
     Indication: Ill-defined disorder
     Dosage: 1 DOSAGE FORM, QW (TAKE ONE TABLET ON THE SAME DAY EACH WEEK TO HE...)
     Route: 065
     Dates: start: 20240618
  13. EMPAGLIFLOZIN [Concomitant]
     Active Substance: EMPAGLIFLOZIN
     Indication: Ill-defined disorder
     Dosage: QD (TAKE ONE DAILY
     Route: 065
     Dates: start: 20250708
  14. CALCIPOTRIENE [Concomitant]
     Active Substance: CALCIPOTRIENE
     Indication: Ill-defined disorder
     Dosage: UNK UNK, BID (USE TWICE DAILY)
     Route: 065
     Dates: start: 20250714
  15. MEBEVERINE HYDROCHLORIDE [Concomitant]
     Active Substance: MEBEVERINE HYDROCHLORIDE
     Indication: Ill-defined disorder
     Dosage: UNK UNK, TID (TAKE ONE 3 TIMES/DAY)
     Route: 065
     Dates: start: 20250722
  16. CHOLECALCIFEROL [Concomitant]
     Active Substance: CHOLECALCIFEROL
     Indication: Ill-defined disorder
     Dosage: UNK, QW (TAKE ONCE A WEEK ON ATHURDYA)
     Route: 065
     Dates: start: 20250722
  17. CINNARIZINE [Concomitant]
     Active Substance: CINNARIZINE
     Indication: Nausea
     Dosage: 2 DOSAGE FORM, TID (TAKE TWO TABLETS THREE TIMES A DAY FOR NAUSEA A...
     Route: 065
     Dates: start: 20250722
  18. BACLOFEN [Concomitant]
     Active Substance: BACLOFEN
     Indication: Ill-defined disorder
     Dosage: TAKE HALF  TABLET THREE TIMES A DAY FOR TOW WEE...
     Route: 065
     Dates: start: 20250729
  19. GLICLAZIDE [Concomitant]
     Active Substance: GLICLAZIDE
     Indication: Ill-defined disorder
     Dosage: 2 DOSAGE FORM, BID (TAKE TWO TABLETS TWICE DAILY WITH FOOD.)
     Route: 065
     Dates: start: 20250729
  20. MIRTAZAPINE [Concomitant]
     Active Substance: MIRTAZAPINE
     Indication: Depressed mood
     Dosage: 1 DOSAGE FORM, QD (TAKE ONE TABLET AT NIGHT TO HELP PREVENT LOW MOOD)
     Route: 065
     Dates: start: 20250729
  21. MIRTAZAPINE [Concomitant]
     Active Substance: MIRTAZAPINE
     Indication: Prophylaxis
  22. MORPHINE SULFATE [Concomitant]
     Active Substance: MORPHINE SULFATE
     Indication: Ill-defined disorder
     Dosage: 1 DOSAGE FORM, BID (MORPHINE SULPHATE) TAKE ONE CAPSULE TWICE A DA...)
     Route: 065
     Dates: start: 20250729
  23. BISOPROLOL [Concomitant]
     Active Substance: BISOPROLOL
     Indication: Ill-defined disorder
     Dosage: 1 DOSAGE FORM, OD (TAKE ONE TABLET ONCE A DAY INSTEAD OF PROPRANOL...)
     Route: 065
     Dates: start: 20250730

REACTIONS (3)
  - Joint swelling [Recovered/Resolved]
  - Arthralgia [Unknown]
  - Myalgia [Recovered/Resolved]
